FAERS Safety Report 5899591-3 (Version None)
Quarter: 2008Q3

REPORT INFORMATION
  Report Type: 
  Country: None (occurrence: None)
  Receive Date: 20080926
  Receipt Date: 20080919
  Transmission Date: 20090109
  Serious: Yes (Hospitalization)
  Sender: FDA-Public Use
  Company Number: PHHY2008FR21986

PATIENT
  Age: 50 Year
  Sex: Male

DRUGS (1)
  1. VOLTAREN [Suspect]
     Indication: ANKYLOSING SPONDYLITIS
     Dosage: 100 MG/DAY
     Dates: start: 20080901

REACTIONS (8)
  - CHROMATURIA [None]
  - FATIGUE [None]
  - HEPATITIS [None]
  - JAUNDICE [None]
  - MUSCULAR WEAKNESS [None]
  - MYALGIA [None]
  - PARESIS [None]
  - TREMOR [None]
